FAERS Safety Report 19257928 (Version 2)
Quarter: 2021Q2

REPORT INFORMATION
  Report Type: Spontaneous
  Country: US (occurrence: US)
  Receive Date: 20210514
  Receipt Date: 20210517
  Transmission Date: 20210717
  Serious: Yes (Death, Other)
  Sender: FDA-Public Use
  Company Number: US-ROCHE-2830554

PATIENT
  Age: 89 Year
  Sex: Female

DRUGS (4)
  1. METOPROLOL. [Concomitant]
     Active Substance: METOPROLOL
  2. WARFARIN [Concomitant]
     Active Substance: WARFARIN
  3. LASIX [Concomitant]
     Active Substance: FUROSEMIDE
  4. ACTIVASE [Suspect]
     Active Substance: ALTEPLASE
     Indication: ISCHAEMIC STROKE
     Route: 042
     Dates: start: 20210210, end: 20210210

REACTIONS (3)
  - Haemorrhage [Unknown]
  - Cardiac arrest [Fatal]
  - Cerebrovascular accident [Fatal]

NARRATIVE: CASE EVENT DATE: 20210210
